FAERS Safety Report 7321887-9 (Version None)
Quarter: 2011Q1

REPORT INFORMATION
  Report Type: 
  Country: None (occurrence: None)
  Receive Date: 20110228
  Receipt Date: 20110218
  Transmission Date: 20110831
  Serious: Yes (Hospitalization, Other)
  Sender: FDA-Public Use
  Company Number: US-ROCHE-503108

PATIENT
  Sex: Female
  Weight: 50.3 kg

DRUGS (3)
  1. PRILOSEC [Concomitant]
  2. ACCUTANE [Suspect]
     Indication: ACNE
     Route: 048
     Dates: start: 19900301, end: 19900925
  3. DEMULEN 1/35-28 [Concomitant]
     Dates: start: 19900101

REACTIONS (26)
  - ILEITIS [None]
  - DUODENITIS [None]
  - SYNOVIAL CYST [None]
  - HEPATIC ENZYME INCREASED [None]
  - PEPTIC ULCER [None]
  - ACNE [None]
  - OVARIAN CYST [None]
  - INTESTINAL OBSTRUCTION [None]
  - DEPRESSION [None]
  - MICROCYTIC ANAEMIA [None]
  - BLOOD TRIGLYCERIDES INCREASED [None]
  - CROHN'S DISEASE [None]
  - SUNBURN [None]
  - ENTERITIS [None]
  - INFLAMMATORY BOWEL DISEASE [None]
  - MALABSORPTION [None]
  - IRON DEFICIENCY ANAEMIA [None]
  - BLOOD CHOLESTEROL INCREASED [None]
  - DEHYDRATION [None]
  - PANCREATITIS [None]
  - OESOPHAGITIS [None]
  - DRY SKIN [None]
  - DUODENAL STENOSIS [None]
  - EMOTIONAL DISTRESS [None]
  - RASH [None]
  - LIP DRY [None]
